FAERS Safety Report 7522273-9 (Version None)
Quarter: 2011Q2

REPORT INFORMATION
  Report Type: 
  Country: None (occurrence: None)
  Receive Date: 20110603
  Receipt Date: 20110502
  Transmission Date: 20111010
  Serious: No
  Sender: FDA-Public Use
  Company Number: US-BAYER-2011-039691

PATIENT
  Age: 86 Year
  Sex: Male
  Weight: 86 kg

DRUGS (3)
  1. ALEVE (CAPLET) [Suspect]
     Indication: ARTHRITIS
     Dosage: 1 DF, BID
     Route: 048
     Dates: start: 20110411, end: 20110502
  2. MORPHINE [Concomitant]
  3. PROSTATE MEDICATION [Concomitant]

REACTIONS (2)
  - PAIN [None]
  - VISION BLURRED [None]
